FAERS Safety Report 14522011 (Version 2)
Quarter: 2018Q2

REPORT INFORMATION
  Report Type: Spontaneous
  Country: DE (occurrence: DE)
  Receive Date: 20180212
  Receipt Date: 20180611
  Transmission Date: 20180711
  Serious: Yes (Hospitalization, Other)
  Sender: FDA-Public Use
  Company Number: DE-MYLANLABS-2018M1009573

PATIENT
  Age: 50 Year
  Sex: Male

DRUGS (6)
  1. CISPLATIN. [Suspect]
     Active Substance: CISPLATIN
     Indication: LARYNGEAL SQUAMOUS CELL CARCINOMA
     Dosage: 75 MG/M2
     Route: 065
  2. CETUXIMAB. [Suspect]
     Active Substance: CETUXIMAB
     Indication: LARYNGEAL SQUAMOUS CELL CARCINOMA
     Dosage: 500 MG/M2
     Route: 065
  3. PEMETREXED. [Suspect]
     Active Substance: PEMETREXED
     Dosage: 1.60 MG/M2, Q3W
  4. CETUXIMAB. [Suspect]
     Active Substance: CETUXIMAB
     Dosage: 850 MG
     Route: 042
  5. PEMETREXED. [Suspect]
     Active Substance: PEMETREXED
     Indication: PRODUCT USED FOR UNKNOWN INDICATION
     Dosage: 500 MG/M2
     Route: 065
  6. CETUXIMAB. [Suspect]
     Active Substance: CETUXIMAB
     Dosage: 530 MG, UNK
     Route: 065

REACTIONS (4)
  - Cardio-respiratory arrest [Recovered/Resolved]
  - Ventricular fibrillation [Recovered/Resolved]
  - Febrile neutropenia [Unknown]
  - Blood magnesium decreased [Unknown]

NARRATIVE: CASE EVENT DATE: 201009
